FAERS Safety Report 6759469-X (Version None)
Quarter: 2010Q2

REPORT INFORMATION
  Report Type: 
  Country: None (occurrence: None)
  Receive Date: 20100603
  Receipt Date: 20100518
  Transmission Date: 20101027
  Serious: Yes (Death, Hospitalization)
  Sender: FDA-Public Use
  Company Number: 1-22668466

PATIENT
  Age: 71 Year
  Sex: Male

DRUGS (1)
  1. PREDNISOLONE [Suspect]
     Indication: IDIOPATHIC THROMBOCYTOPENIC PURPURA
     Dosage: 90 MG DAILY, ORAL
     Route: 048

REACTIONS (15)
  - ABDOMINAL PAIN LOWER [None]
  - BLOOD PRESSURE SYSTOLIC INCREASED [None]
  - DYSPNOEA EXERTIONAL [None]
  - GENERAL PHYSICAL HEALTH DETERIORATION [None]
  - GLYCOSURIA [None]
  - HAEMATURIA [None]
  - HAEMOGLOBIN DECREASED [None]
  - HYPERGLYCAEMIA [None]
  - KIDNEY INFECTION [None]
  - PULMONARY HAEMORRHAGE [None]
  - PULMONARY MASS [None]
  - PURULENCE [None]
  - RENAL INFARCT [None]
  - RESPIRATORY FAILURE [None]
  - SYSTEMIC MYCOSIS [None]
